FAERS Safety Report 11080313 (Version 1)
Quarter: 2015Q2

REPORT INFORMATION
  Report Type: Report from Study
  Country: BR (occurrence: BR)
  Receive Date: 20150430
  Receipt Date: 20150430
  Transmission Date: 20150821
  Serious: Yes (Other)
  Sender: FDA-Public Use
  Company Number: PHHY2015BR047371

PATIENT
  Sex: Female
  Weight: 41 kg

DRUGS (5)
  1. EXELON PATCH [Suspect]
     Active Substance: RIVASTIGMINE
     Dosage: 1 DF, UNK (1 PATCH 10 CM)
     Route: 062
  2. EPEZ [Concomitant]
     Active Substance: DONEPEZIL HYDROCHLORIDE
     Indication: PRODUCT USED FOR UNKNOWN INDICATION
     Dosage: 1 DF, QD
     Route: 065
  3. ARADOIS [Concomitant]
     Active Substance: LOSARTAN POTASSIUM
     Indication: PRODUCT USED FOR UNKNOWN INDICATION
     Dosage: 25 MG, QD (HALF TABLET AT NIGHT)
     Route: 065
  4. EXELON PATCH [Suspect]
     Active Substance: RIVASTIGMINE
     Indication: MEMORY IMPAIRMENT
     Dosage: 1 DF, QD (1 PATCH 5 CM)
     Route: 062
     Dates: start: 201412
  5. SIMVASTATIN. [Concomitant]
     Active Substance: SIMVASTATIN
     Indication: PRODUCT USED FOR UNKNOWN INDICATION
     Dosage: 20 MG, QD (1 TABLET AT NIGHT)
     Route: 065

REACTIONS (5)
  - Crying [Recovering/Resolving]
  - Blindness [Unknown]
  - Depression [Recovering/Resolving]
  - Retinal detachment [Unknown]
  - Memory impairment [Not Recovered/Not Resolved]
